FAERS Safety Report 9276280 (Version 2)
Quarter: 2013Q3

REPORT INFORMATION
  Report Type: Spontaneous
  Country: BR (occurrence: BR)
  Receive Date: 20130507
  Receipt Date: 20130902
  Transmission Date: 20140515
  Serious: Yes (Hospitalization, Other)
  Sender: FDA-Public Use
  Company Number: PHHY2013BR044063

PATIENT
  Age: 65 Year
  Sex: Female

DRUGS (2)
  1. TRILEPTAL [Suspect]
     Indication: CONVULSION
     Dosage: 17.5 ML, PER DAY
  2. TRILEPTAL [Suspect]
     Dosage: 20 ML, PER DAY

REACTIONS (2)
  - Pneumonia aspiration [Recovered/Resolved]
  - Convulsion [Recovered/Resolved]
